FAERS Safety Report 7374750-1 (Version None)
Quarter: 2011Q1

REPORT INFORMATION
  Report Type: 
  Country: None (occurrence: None)
  Receive Date: 20110325
  Receipt Date: 20101101
  Transmission Date: 20110831
  Serious: No
  Sender: FDA-Public Use
  Company Number: US-MYLANLABS-2010S1018735

PATIENT
  Sex: Female

DRUGS (3)
  1. FENTANYL-100 [Suspect]
     Dosage: CHANGES PATCHES Q2D
     Route: 062
     Dates: start: 20100607
  2. VICODIN [Concomitant]
  3. FENTANYL-100 [Suspect]
     Indication: ARTHRALGIA
     Route: 062
     Dates: end: 20100607

REACTIONS (16)
  - WEIGHT DECREASED [None]
  - PARANASAL SINUS HYPERSECRETION [None]
  - FATIGUE [None]
  - SOMNOLENCE [None]
  - WITHDRAWAL SYNDROME [None]
  - OVERDOSE [None]
  - DRUG EFFECT DECREASED [None]
  - DIARRHOEA [None]
  - URINE OUTPUT INCREASED [None]
  - ASTHENIA [None]
  - NAUSEA [None]
  - MALAISE [None]
  - VOMITING [None]
  - ABDOMINAL PAIN UPPER [None]
  - DECREASED APPETITE [None]
  - FEELING ABNORMAL [None]
